FAERS Safety Report 6099509-7 (Version None)
Quarter: 2009Q1

REPORT INFORMATION
  Report Type: 
  Country: None (occurrence: None)
  Receive Date: 20090303
  Receipt Date: 20090224
  Transmission Date: 20090719
  Serious: Yes (Hospitalization)
  Sender: FDA-Public Use
  Company Number: JP-BIOGENIDEC-2008BI028521

PATIENT
  Age: 34 Year
  Sex: Male

DRUGS (4)
  1. AVONEX [Suspect]
     Indication: RELAPSING-REMITTING MULTIPLE SCLEROSIS
     Route: 030
     Dates: start: 20080214, end: 20080221
  2. AVONEX [Suspect]
     Route: 030
     Dates: start: 20080222
  3. PREDONINE [Concomitant]
     Indication: MULTIPLE SCLEROSIS
     Route: 030
     Dates: start: 20080214, end: 20080221
  4. PREDONINE [Concomitant]
     Route: 030
     Dates: start: 20080222

REACTIONS (1)
  - CEREBRAL DISORDER [None]
